FAERS Safety Report 8959097 (Version 2)
Quarter: 2013Q1

REPORT INFORMATION
  Report Type: Spontaneous
  Country: CA (occurrence: CA)
  Receive Date: 20121212
  Receipt Date: 20130225
  Transmission Date: 20140127
  Serious: Yes (Hospitalization, Other)
  Sender: FDA-Public Use
  Company Number: CA-BAYER-2012-128672

PATIENT
  Age: 26 Year
  Sex: Female

DRUGS (5)
  1. YASMIN 21 [Suspect]
     Indication: CONTRACEPTION
     Dosage: UNK
     Route: 048
  2. CALCIUM [Concomitant]
  3. FISH OIL [Concomitant]
  4. IBUPROFEN [Concomitant]
     Indication: MIGRAINE
  5. MULTIVITAMIN [Concomitant]

REACTIONS (7)
  - Deep vein thrombosis [None]
  - Joint injury [None]
  - Mobility decreased [None]
  - Pulmonary embolism [None]
  - Dizziness [None]
  - Chest pain [None]
  - Dyspnoea [None]
